FAERS Safety Report 5137021-X (Version None)
Quarter: 2006Q4

REPORT INFORMATION
  Report Type: 
  Country: None (occurrence: None)
  Receive Date: 20061030
  Receipt Date: 20061016
  Transmission Date: 20070319
  Serious: Yes (Other)
  Sender: FDA-Public Use
  Company Number: PHEH2006US12953

PATIENT
  Age: 84 Year
  Sex: Female
  Weight: 58.956 kg

DRUGS (7)
  1. DIOVAN [Suspect]
     Indication: CARDIAC FAILURE CONGESTIVE
     Dosage: 80MG, UNK
     Dates: start: 20050901
  2. FUROSEMIDE [Suspect]
     Indication: CARDIAC FAILURE CONGESTIVE
     Dosage: 20MG, UNK
     Dates: start: 20030101
  3. COREG [Suspect]
     Indication: CARDIAC FAILURE CONGESTIVE
     Dosage: 3.125MG, UNK
     Route: 048
     Dates: start: 20060225
  4. COREG [Suspect]
     Dosage: 6.25 MG, BID
     Route: 048
     Dates: end: 20060502
  5. DIGOXIN [Concomitant]
     Dosage: UNK, UNK
  6. WARFARIN SODIUM [Concomitant]
     Dosage: UNK, UNK
     Dates: start: 20031001
  7. OXYBUTYNIN [Concomitant]
     Dosage: UNK, UNK
     Dates: start: 20031001

REACTIONS (3)
  - DIPLOPIA [None]
  - EYELID PTOSIS [None]
  - MYASTHENIA GRAVIS [None]
